FAERS Safety Report 18169117 (Version 1)
Quarter: 2020Q3

REPORT INFORMATION
  Report Type: Spontaneous
  Country: GB (occurrence: GB)
  Receive Date: 20200818
  Receipt Date: 20200818
  Transmission Date: 20201103
  Serious: Yes (Other)
  Sender: FDA-Public Use
  Company Number: GB-ASCEND THERAPEUTICS US, LLC-2088767

PATIENT
  Age: 52 Year
  Sex: Female
  Weight: 58 kg

DRUGS (6)
  1. ESTROGEL [Suspect]
     Active Substance: ESTRADIOL
  2. ESTROGEL [Suspect]
     Active Substance: ESTRADIOL
     Indication: HORMONE REPLACEMENT THERAPY
     Route: 061
     Dates: start: 20200523
  3. OESTROGEL (ESTRADIOL), UNKNOWN [Concomitant]
     Active Substance: ESTRADIOL
  4. UTROGESTAN (MICRONIZED PROGESTERONE), UNKNOWN [Concomitant]
  5. TESTOSTERONE (TESTOSTERONE), UNKNOWN [Concomitant]
  6. OESTRODOSE (ESTRADIOL)?INDICATION FOR USE: HORMONE REPLACEMENT THERAPY [Suspect]
     Active Substance: ESTRADIOL
     Route: 061
     Dates: start: 20200523

REACTIONS (4)
  - Product substitution issue [Unknown]
  - Skin irritation [Unknown]
  - Drug ineffective [Not Recovered/Not Resolved]
  - Product label issue [Unknown]
